FAERS Safety Report 7814914-3 (Version None)
Quarter: 2011Q4

REPORT INFORMATION
  Report Type: 
  Country: None (occurrence: None)
  Receive Date: 20111014
  Receipt Date: 20111011
  Transmission Date: 20120403
  Serious: No
  Sender: FDA-Public Use
  Company Number: US-BAYER-2011-098658

PATIENT
  Sex: Male

DRUGS (1)
  1. BETASERON [Suspect]
     Dosage: 0.3 MG, UNK

REACTIONS (1)
  - PROTEINURIA [None]
